FAERS Safety Report 24830981 (Version 4)
Quarter: 2025Q1

REPORT INFORMATION
  Report Type: Spontaneous
  Country: US (occurrence: US)
  Receive Date: 20250110
  Receipt Date: 20250219
  Transmission Date: 20250409
  Serious: No
  Sender: ALEXION PHARMACEUTICALS
  Company Number: US-AstraZeneca-CH-00781870AP

PATIENT

DRUGS (1)
  1. BYDUREON BCISE [Suspect]
     Active Substance: EXENATIDE
     Dosage: 2 MILLIGRAM, QW

REACTIONS (5)
  - Memory impairment [Unknown]
  - Weight decreased [Unknown]
  - Needle issue [Unknown]
  - Wrong technique in device usage process [Unknown]
  - Device issue [Unknown]
